FAERS Safety Report 4533869-0 (Version None)
Quarter: 2004Q4

REPORT INFORMATION
  Report Type: 
  Country: None (occurrence: None)
  Receive Date: 20041214
  Receipt Date: 20040922
  Transmission Date: 20050328
  Serious: No
  Sender: FDA-Public Use
  Company Number: US_0409105475

PATIENT
  Age: 77 Year
  Sex: Male
  Weight: 75 kg

DRUGS (9)
  1. CIALIS [Suspect]
     Indication: ERECTILE DYSFUNCTION
     Dosage: 20 MG AS NEEDED
  2. PROSCAR [Concomitant]
  3. TERAZOSIN HCL [Concomitant]
  4. CRESTOR [Concomitant]
  5. DIOVAN [Concomitant]
  6. PLAVIX [Concomitant]
  7. HYDROCHLOROTHIAZIDE [Concomitant]
  8. BABY ASPIRIN (ACETYLSALCYLIC ACID) [Concomitant]
  9. MULTIVITAMINS NOS (MULTIVITAMINS NOS) [Concomitant]

REACTIONS (4)
  - BLOOD PRESSURE DECREASED [None]
  - FEELING ABNORMAL [None]
  - HEART RATE INCREASED [None]
  - THERAPEUTIC RESPONSE DECREASED [None]
